FAERS Safety Report 8426856-3 (Version None)
Quarter: 2012Q2

REPORT INFORMATION
  Report Type: 
  Country: None (occurrence: None)
  Receive Date: 20120611
  Receipt Date: 20120601
  Transmission Date: 20120825
  Serious: Yes (Other)
  Sender: FDA-Public Use
  Company Number: CA-ROCHE-1056645

PATIENT
  Sex: Male
  Weight: 85.806 kg

DRUGS (2)
  1. VEMURAFENIB [Suspect]
     Indication: METASTATIC MALIGNANT MELANOMA
     Route: 048
     Dates: start: 20120301, end: 20120502
  2. DEXAMETHASONE [Concomitant]
     Route: 048

REACTIONS (8)
  - DISEASE PROGRESSION [None]
  - MUSCULOSKELETAL CHEST PAIN [None]
  - RIB FRACTURE [None]
  - NEOPLASM PROGRESSION [None]
  - PRURITUS [None]
  - DRUG EFFECT DECREASED [None]
  - HAEMOGLOBIN DECREASED [None]
  - RASH PAPULAR [None]
